FAERS Safety Report 4375005-X (Version None)
Quarter: 2004Q2

REPORT INFORMATION
  Report Type: 
  Country: None (occurrence: None)
  Receive Date: 20040604
  Receipt Date: 20040116
  Transmission Date: 20050107
  Serious: Yes (Death)
  Sender: FDA-Public Use
  Company Number: 7190

PATIENT
  Age: 80 Year
  Sex: Male

DRUGS (9)
  1. METHOTREXATE [Suspect]
     Indication: RHEUMATOID ARTHRITIS
     Dosage: 15 MG WEEKLY; PO
     Route: 048
     Dates: start: 20020601, end: 20021201
  2. DICLOFENAC SODIUM [Concomitant]
  3. RANITIDINE [Concomitant]
  4. FUROSEMIDE [Concomitant]
  5. ISOSORBIDE MONONITRATE [Concomitant]
  6. ASPIRIN [Concomitant]
  7. CO-DYDRAMOL [Concomitant]
  8. FOLIC ACID [Concomitant]
  9. INSULIN [Concomitant]

REACTIONS (2)
  - PULMONARY FIBROSIS [None]
  - SUDDEN DEATH [None]
